FAERS Safety Report 12936513 (Version 2)
Quarter: 2016Q4

REPORT INFORMATION
  Report Type: Spontaneous
  Country: US (occurrence: US)
  Receive Date: 20161114
  Receipt Date: 20161219
  Transmission Date: 20170207
  Serious: No
  Sender: FDA-Public Use
  Company Number: US-009507513-1611USA005194

PATIENT
  Age: 17 Year
  Sex: Female
  Weight: 64.4 kg

DRUGS (1)
  1. NEXPLANON [Suspect]
     Active Substance: ETONOGESTREL
     Indication: CONTRACEPTION
     Dosage: 1 ROD, UP TO 3 YEARS
     Route: 059
     Dates: start: 20141222

REACTIONS (2)
  - Implant site pain [Unknown]
  - Implant site swelling [Unknown]

NARRATIVE: CASE EVENT DATE: 20161026
